FAERS Safety Report 26088212 (Version 1)
Quarter: 2025Q4

REPORT INFORMATION
  Report Type: Spontaneous
  Country: EU (occurrence: EU)
  Receive Date: 20251125
  Receipt Date: 20251125
  Transmission Date: 20260118
  Serious: Yes (Other)
  Sender: NOVARTIS
  Company Number: EU-002147023-NVSC2025PL178684

PATIENT
  Age: 36 Year
  Sex: Female

DRUGS (1)
  1. OFATUMUMAB [Suspect]
     Active Substance: OFATUMUMAB
     Indication: Relapsing-remitting multiple sclerosis
     Dosage: UNK
     Route: 058
     Dates: start: 202212

REACTIONS (9)
  - Paresis [Unknown]
  - Ataxia [Unknown]
  - Demyelination [Unknown]
  - Dysphagia [Unknown]
  - Visual impairment [Unknown]
  - Diplopia [Unknown]
  - Fatigue [Unknown]
  - Dyspnoea exertional [Unknown]
  - Muscle fatigue [Unknown]
